FAERS Safety Report 7571438-9 (Version None)
Quarter: 2011Q2

REPORT INFORMATION
  Report Type: 
  Country: None (occurrence: None)
  Receive Date: 20110624
  Receipt Date: 20110620
  Transmission Date: 20111010
  Serious: Yes (Death, Other)
  Sender: FDA-Public Use
  Company Number: PHHY2011IN54545

PATIENT
  Age: 14 Year
  Sex: Male

DRUGS (3)
  1. FLUOROURACIL [Suspect]
     Indication: NASOPHARYNGEAL CANCER
     Dosage: 750 MG/M2, UNK
  2. CISPLATIN [Concomitant]
     Dosage: 50 MG/M2, UNK
  3. ENALAPRIL MALEATE [Concomitant]

REACTIONS (14)
  - CONGESTIVE CARDIOMYOPATHY [None]
  - CIRCULATORY COLLAPSE [None]
  - TACHYCARDIA [None]
  - SINUS TACHYCARDIA [None]
  - CARDIOMEGALY [None]
  - PULMONARY OEDEMA [None]
  - ARRHYTHMIA [None]
  - CARDIAC ARREST [None]
  - RALES [None]
  - EJECTION FRACTION DECREASED [None]
  - SUDDEN DEATH [None]
  - DIZZINESS [None]
  - TACHYPNOEA [None]
  - HYPOTENSION [None]
